FAERS Safety Report 18527117 (Version 1)
Quarter: 2020Q4

REPORT INFORMATION
  Report Type: Spontaneous
  Country: US (occurrence: US)
  Receive Date: 20201120
  Receipt Date: 20201120
  Transmission Date: 20210114
  Serious: Yes (Other)
  Sender: FDA-Public Use
  Company Number: None

PATIENT
  Sex: Female

DRUGS (1)
  1. MORPHINE SULFATE ER [Suspect]
     Active Substance: MORPHINE SULFATE

REACTIONS (1)
  - Feeling abnormal [None]
